FAERS Safety Report 11514371 (Version 1)
Quarter: 2015Q3

REPORT INFORMATION
  Report Type: Spontaneous
  Country: FR (occurrence: FR)
  Receive Date: 20150916
  Receipt Date: 20150916
  Transmission Date: 20151125
  Serious: Yes (Hospitalization)
  Sender: FDA-Public Use
  Company Number: FR-009507513-1509FRA005549

PATIENT
  Age: 86 Year
  Sex: Female

DRUGS (7)
  1. TAREG [Concomitant]
     Active Substance: VALSARTAN
     Dosage: 80 MG, QD
  2. FOSAVANCE [Suspect]
     Active Substance: ALENDRONATE SODIUM\CHOLECALCIFEROL
     Dosage: 70 MG PER WEEK
     Route: 048
     Dates: end: 201507
  3. LASILIX [Concomitant]
     Active Substance: FUROSEMIDE
     Dosage: 20 MG, QD
  4. AMLOR [Concomitant]
     Active Substance: AMLODIPINE BESYLATE
     Dosage: 5 MG, QD
  5. IXPRIM (ACETAMINOPHEN (+) TRAMADOL HYDROCHLORIDE) [Concomitant]
     Active Substance: ACETAMINOPHEN\TRAMADOL
     Dosage: 1 DF, BID
  6. UVEDOSE [Suspect]
     Active Substance: CHOLECALCIFEROL
     Dosage: 1 DF, EVERY 2 MONTHS
     Route: 048
  7. KARDEGIC [Concomitant]
     Active Substance: ASPIRIN LYSINE
     Dosage: 75 MG, QD

REACTIONS (1)
  - Hypercalcaemia [Recovered/Resolved]

NARRATIVE: CASE EVENT DATE: 20150729
